FAERS Safety Report 23758451 (Version 2)
Quarter: 2024Q2

REPORT INFORMATION
  Report Type: Spontaneous
  Country: AU (occurrence: AU)
  Receive Date: 20240418
  Receipt Date: 20240513
  Transmission Date: 20240716
  Serious: Yes (Life-Threatening, Hospitalization)
  Sender: FDA-Public Use
  Company Number: AU-TEVA-VS-3185039

PATIENT
  Age: 55 Year
  Sex: Female

DRUGS (3)
  1. CLOPIDOGREL [Suspect]
     Active Substance: CLOPIDOGREL BISULFATE
     Indication: Myocardial ischaemia
     Route: 065
  2. ASPIRIN [Concomitant]
     Active Substance: ASPIRIN
     Indication: Myocardial ischaemia
     Route: 065
  3. QUININE [Suspect]
     Active Substance: QUININE
     Indication: Muscle spasms
     Route: 065

REACTIONS (3)
  - Thrombotic microangiopathy [Recovered/Resolved]
  - Off label use [Unknown]
  - Renal failure [Recovered/Resolved]
